FAERS Safety Report 15259069 (Version 14)
Quarter: 2019Q4

REPORT INFORMATION
  Report Type: Spontaneous
  Country: CA (occurrence: CA)
  Receive Date: 20180809
  Receipt Date: 20191118
  Transmission Date: 20200122
  Serious: Yes (Other)
  Sender: FDA-Public Use
  Company Number: CA-ORION CORPORATION ORION PHARMA-TREX2016-0134

PATIENT
  Age: 76 Year
  Sex: Female

DRUGS (81)
  1. ACTEMRA [Suspect]
     Active Substance: TOCILIZUMAB
     Route: 065
  2. ENBREL [Suspect]
     Active Substance: ETANERCEPT
     Dosage: CYCLIC
     Route: 058
  3. ENBREL [Suspect]
     Active Substance: ETANERCEPT
     Route: 058
  4. GOLD [Suspect]
     Active Substance: GOLD
     Indication: RHEUMATOID ARTHRITIS
     Route: 065
  5. REMICADE [Suspect]
     Active Substance: INFLIXIMAB
     Route: 042
     Dates: start: 2015
  6. OMNARIS [Concomitant]
     Active Substance: CICLESONIDE
     Route: 065
  7. METHOTREXATE (TRADE NAME UNKNOWN) [Suspect]
     Active Substance: METHOTREXATE
     Dosage: 4 TIMES/WEEK
     Route: 067
  8. ENBREL [Suspect]
     Active Substance: ETANERCEPT
     Indication: RHEUMATOID ARTHRITIS
     Dosage: 2 TIMES/WEEK
     Route: 058
     Dates: start: 200205, end: 200409
  9. ENBREL [Suspect]
     Active Substance: ETANERCEPT
     Dosage: CYCLIC
     Route: 065
  10. HUMIRA [Suspect]
     Active Substance: ADALIMUMAB
     Route: 058
  11. ORENCIA [Suspect]
     Active Substance: ABATACEPT
     Indication: RHEUMATOID ARTHRITIS
     Route: 042
     Dates: start: 200611, end: 2007
  12. ATIVAN [Concomitant]
     Active Substance: LORAZEPAM
     Route: 065
  13. DARIFENACIN HYDROBROMIDE. [Concomitant]
     Active Substance: DARIFENACIN HYDROBROMIDE
     Route: 065
  14. ABATACEPT [Concomitant]
     Active Substance: ABATACEPT
     Route: 065
  15. KINERET [Concomitant]
     Active Substance: ANAKINRA
     Route: 065
  16. CODEINE [Concomitant]
     Active Substance: CODEINE
     Route: 065
  17. METHOTREXATE (TRADE NAME UNKNOWN) [Suspect]
     Active Substance: METHOTREXATE
     Indication: RHEUMATOID ARTHRITIS
     Route: 065
     Dates: end: 200411
  18. METHOTREXATE (TRADE NAME UNKNOWN) [Suspect]
     Active Substance: METHOTREXATE
     Dosage: 4 TIMES/WEEK
     Route: 065
  19. ACTEMRA [Suspect]
     Active Substance: TOCILIZUMAB
     Indication: RHEUMATOID ARTHRITIS
     Route: 065
     Dates: end: 20150203
  20. TOCILIZUMAB. [Suspect]
     Active Substance: TOCILIZUMAB
     Indication: RHEUMATOID ARTHRITIS
     Route: 065
  21. RITUXIMAB. [Suspect]
     Active Substance: RITUXIMAB
     Indication: PRODUCT USED FOR UNKNOWN INDICATION
     Route: 065
  22. SYNTHROID [Concomitant]
     Active Substance: LEVOTHYROXINE SODIUM
     Route: 065
  23. DESOXIMETASONE. [Concomitant]
     Active Substance: DESOXIMETASONE
     Route: 065
  24. OXYNEO [Concomitant]
     Active Substance: OXYCODONE
     Route: 065
  25. RESTASIS [Concomitant]
     Active Substance: CYCLOSPORINE
     Route: 065
  26. TRIMETHOPRIM. [Concomitant]
     Active Substance: TRIMETHOPRIM
     Route: 065
  27. URISPAS [Concomitant]
     Active Substance: FLAVOXATE HYDROCHLORIDE
     Route: 065
  28. KENALOG [Concomitant]
     Active Substance: TRIAMCINOLONE ACETONIDE
     Route: 065
  29. ANAKINRA [Concomitant]
     Active Substance: ANAKINRA
     Route: 065
  30. ENBREL [Suspect]
     Active Substance: ETANERCEPT
     Route: 065
  31. HUMIRA [Suspect]
     Active Substance: ADALIMUMAB
     Indication: RHEUMATOID ARTHRITIS
     Dosage: CYCLIC
     Route: 058
     Dates: start: 2005, end: 2006
  32. HUMIRA [Suspect]
     Active Substance: ADALIMUMAB
     Route: 058
  33. HYDROXYCHLOROQUINE [Suspect]
     Active Substance: HYDROXYCHLOROQUINE
     Route: 065
  34. ARAVA [Suspect]
     Active Substance: LEFLUNOMIDE
     Indication: RHEUMATOID ARTHRITIS
     Route: 065
  35. DILAUDID [Concomitant]
     Active Substance: HYDROMORPHONE HYDROCHLORIDE
     Indication: ANALGESIC THERAPY
     Route: 065
     Dates: start: 201503
  36. FUROSEMIDE. [Concomitant]
     Active Substance: FUROSEMIDE
     Route: 065
  37. KADIAN [Concomitant]
     Active Substance: MORPHINE SULFATE
     Route: 065
  38. DIPHENHYDRAMINE. [Concomitant]
     Active Substance: DIPHENHYDRAMINE
     Route: 065
  39. DEXAMETHASONE. [Concomitant]
     Active Substance: DEXAMETHASONE
     Route: 065
  40. DYCLONE [Concomitant]
     Active Substance: DYCLONINE HYDROCHLORIDE
     Route: 065
  41. LAXISOFT [Concomitant]
     Route: 065
  42. PANTOPRAZOLE SODIUM. [Concomitant]
     Active Substance: PANTOPRAZOLE SODIUM
     Route: 065
  43. TRIAMCINOLONE ACETONIDE. [Concomitant]
     Active Substance: TRIAMCINOLONE ACETONIDE
     Route: 065
  44. HUMIRA [Suspect]
     Active Substance: ADALIMUMAB
     Route: 065
  45. SODIUM AUROTHIOMALATE [Suspect]
     Active Substance: GOLD SODIUM THIOMALATE
     Route: 065
  46. APO-HYDROXYQUINE [Suspect]
     Active Substance: HYDROXYCHLOROQUINE SULFATE
     Indication: RHEUMATOID ARTHRITIS
     Route: 065
  47. HYDROXYCHLOROQUINE SULFATE. [Suspect]
     Active Substance: HYDROXYCHLOROQUINE SULFATE
     Indication: RHEUMATOID ARTHRITIS
     Route: 065
  48. RITUXAN [Concomitant]
     Active Substance: RITUXIMAB
     Dosage: DAY 1 +15
     Route: 042
     Dates: start: 2007, end: 201010
  49. CORTISONE [Concomitant]
     Active Substance: CORTISONE
     Route: 014
  50. DARIFENACIN HYDROBROMIDE. [Concomitant]
     Active Substance: DARIFENACIN HYDROBROMIDE
     Route: 065
  51. LASIX [Concomitant]
     Active Substance: FUROSEMIDE
     Route: 065
  52. DARIFENACIN. [Concomitant]
     Active Substance: DARIFENACIN
     Route: 065
  53. ORENCIA [Suspect]
     Active Substance: ABATACEPT
     Route: 042
  54. PLAQUENIL [Suspect]
     Active Substance: HYDROXYCHLOROQUINE SULFATE
     Indication: RHEUMATOID ARTHRITIS
     Route: 065
  55. REMICADE [Suspect]
     Active Substance: INFLIXIMAB
     Indication: RHEUMATOID ARTHRITIS
     Route: 042
     Dates: start: 200407, end: 2005
  56. XELJANZ [Suspect]
     Active Substance: TOFACITINIB CITRATE
     Indication: PRODUCT USED FOR UNKNOWN INDICATION
     Route: 065
  57. CORTISONE [Concomitant]
     Active Substance: CORTISONE
     Route: 030
  58. LOPERAMIDE [Concomitant]
     Active Substance: LOPERAMIDE
     Route: 065
  59. ENABLEX [Concomitant]
     Active Substance: DARIFENACIN HYDROBROMIDE
     Route: 065
  60. ENABLEX [Concomitant]
     Active Substance: DARIFENACIN HYDROBROMIDE
     Route: 065
  61. ACETAMINOPHEN. [Concomitant]
     Active Substance: ACETAMINOPHEN
     Route: 065
  62. PLANTAGO OVATA [Concomitant]
     Active Substance: HERBALS\PLANTAGO OVATA LEAF
     Route: 065
  63. PANTOPRAZOLE [Concomitant]
     Active Substance: PANTOPRAZOLE
     Route: 065
  64. METHOTREXATE (TRADE NAME UNKNOWN) [Suspect]
     Active Substance: METHOTREXATE
     Route: 065
  65. METHOTREXATE (TRADE NAME UNKNOWN) [Suspect]
     Active Substance: METHOTREXATE
     Route: 065
  66. ENBREL [Suspect]
     Active Substance: ETANERCEPT
     Route: 065
  67. REMICADE [Suspect]
     Active Substance: INFLIXIMAB
     Route: 042
  68. SODIUM AUROTHIOMALATE [Suspect]
     Active Substance: GOLD SODIUM THIOMALATE
     Indication: PRODUCT USED FOR UNKNOWN INDICATION
     Route: 030
  69. HYDROXYCHLOROQUINE [Suspect]
     Active Substance: HYDROXYCHLOROQUINE
     Indication: RHEUMATOID ARTHRITIS
     Route: 065
  70. BENADRYL [Concomitant]
     Active Substance: DIPHENHYDRAMINE HYDROCHLORIDE
     Dosage: AS NECESSARY
     Route: 065
  71. NORFLEX [Concomitant]
     Active Substance: ORPHENADRINE CITRATE
     Route: 065
  72. PANTOLOC [Concomitant]
     Active Substance: PANTOPRAZOLE SODIUM
     Route: 065
  73. VAGIFEM [Concomitant]
     Active Substance: ESTRADIOL
     Route: 067
  74. PANTOPRAZOLE SODIUM ANHYDROUS [Concomitant]
     Active Substance: PANTOPRAZOLE SODIUM ANHYDROUS
     Route: 065
  75. DYCLONINE HYDROCHLORIDE [Concomitant]
     Active Substance: DYCLONINE HYDROCHLORIDE
     Route: 065
  76. METHOTREXATE (TRADE NAME UNKNOWN) [Suspect]
     Active Substance: METHOTREXATE
     Route: 065
  77. REMICADE [Suspect]
     Active Substance: INFLIXIMAB
     Route: 042
  78. ARAVA [Suspect]
     Active Substance: LEFLUNOMIDE
  79. LEFLUNOMIDE. [Concomitant]
     Active Substance: LEFLUNOMIDE
     Route: 065
  80. HYDROMORPHONE [Concomitant]
     Active Substance: HYDROMORPHONE
     Route: 065
  81. MORPHINE SULFATE. [Concomitant]
     Active Substance: MORPHINE SULFATE
     Route: 065

REACTIONS (31)
  - Therapeutic product effect incomplete [Unknown]
  - Off label use [Not Recovered/Not Resolved]
  - Contraindicated product administered [Recovered/Resolved]
  - Arthritis [Unknown]
  - Drug hypersensitivity [Not Recovered/Not Resolved]
  - Incorrect route of product administration [Not Recovered/Not Resolved]
  - Blood cholesterol increased [Unknown]
  - Herpes zoster [Unknown]
  - Pneumonia viral [Unknown]
  - Rheumatoid arthritis [Unknown]
  - Peripheral swelling [Unknown]
  - Inappropriate schedule of product administration [Not Recovered/Not Resolved]
  - Fibromyalgia [Unknown]
  - Anaemia [Unknown]
  - Tenderness [Not Recovered/Not Resolved]
  - Joint swelling [Unknown]
  - Liver function test abnormal [Unknown]
  - Arthralgia [Unknown]
  - Soft tissue disorder [Unknown]
  - Product use issue [Not Recovered/Not Resolved]
  - Stomatitis [Not Recovered/Not Resolved]
  - Drug intolerance [Not Recovered/Not Resolved]
  - Infection [Unknown]
  - C-reactive protein abnormal [Not Recovered/Not Resolved]
  - Leukopenia [Unknown]
  - Swelling [Not Recovered/Not Resolved]
  - Drug ineffective [Unknown]
  - Oral pain [Not Recovered/Not Resolved]
  - C-reactive protein increased [Not Recovered/Not Resolved]
  - Soft tissue swelling [Recovered/Resolved]
  - Synovitis [Unknown]
